FAERS Safety Report 8226809-4 (Version None)
Quarter: 2012Q1

REPORT INFORMATION
  Report Type: 
  Country: None (occurrence: None)
  Receive Date: 20120322
  Receipt Date: 20120314
  Transmission Date: 20120608
  Serious: Yes (Hospitalization, Other)
  Sender: FDA-Public Use
  Company Number: US-BAYER-2012-018564

PATIENT
  Age: 36 Year
  Sex: Female

DRUGS (3)
  1. FLEXERIL [Concomitant]
  2. YASMIN [Suspect]
     Indication: ENDOMETRIOSIS
     Dosage: UNK
     Route: 048
     Dates: end: 20051004
  3. NAPROSYN [Concomitant]

REACTIONS (5)
  - DYSPNOEA [None]
  - PULMONARY EMBOLISM [None]
  - HYPOXIA [None]
  - PLEURITIC PAIN [None]
  - CEREBRAL INFARCTION [None]
